FAERS Safety Report 9816761 (Version 1)
Quarter: 2014Q1

REPORT INFORMATION
  Report Type: Spontaneous
  Country: US (occurrence: US)
  Receive Date: 20140114
  Receipt Date: 20140114
  Transmission Date: 20141002
  Serious: Yes (Death)
  Sender: FDA-Public Use
  Company Number: US-PFIZER INC-2014007476

PATIENT
  Age: 38 Year
  Sex: Male

DRUGS (5)
  1. VENLAFAXINE HCL [Suspect]
     Dosage: UNK
     Route: 048
  2. AMITRIPTYLINE [Suspect]
     Dosage: UNK
     Route: 048
  3. ACETAMINOPHEN W/HYDROCODONE BITARTRATE [Suspect]
     Dosage: UNK
     Route: 048
  4. TEMAZEPAM [Suspect]
     Dosage: UNK
     Route: 048
  5. ENALAPRIL [Suspect]
     Dosage: UNK
     Route: 048

REACTIONS (1)
  - Completed suicide [Fatal]
